FAERS Safety Report 13243682 (Version 2)
Quarter: 2017Q1

REPORT INFORMATION
  Report Type: Spontaneous
  Country: US (occurrence: US)
  Receive Date: 20170216
  Receipt Date: 20170302
  Transmission Date: 20170428
  Serious: Yes (Other)
  Sender: FDA-Public Use
  Company Number: US-ALLERGAN-1704771US

PATIENT
  Age: 83 Year
  Sex: Female

DRUGS (1)
  1. ALPHAGAN P [Suspect]
     Active Substance: BRIMONIDINE TARTRATE
     Indication: GLAUCOMA
     Dosage: UNK
     Route: 065

REACTIONS (5)
  - Product supply issue [Unknown]
  - Blindness [Not Recovered/Not Resolved]
  - Drug dose omission [Unknown]
  - Visual acuity reduced [Not Recovered/Not Resolved]
  - Eye haemorrhage [Unknown]
